FAERS Safety Report 8603970-0 (Version None)
Quarter: 2012Q3

REPORT INFORMATION
  Report Type: 
  Country: None (occurrence: None)
  Receive Date: 20120820
  Receipt Date: 20120810
  Transmission Date: 20120928
  Serious: Yes (Hospitalization, Other)
  Sender: FDA-Public Use
  Company Number: US-BIOGENIDEC-2012BI027777

PATIENT
  Age: 50 Year
  Sex: Female

DRUGS (8)
  1. NALTREXONE HYDROCHLORIDE [Concomitant]
  2. ASPIRIN [Concomitant]
  3. BACLOFEN [Concomitant]
  4. AVONEX [Suspect]
     Indication: MULTIPLE SCLEROSIS
     Route: 030
  5. PROTONIX [Concomitant]
  6. AVONEX [Suspect]
     Route: 030
     Dates: start: 20070301
  7. OMEGA-3 POLYUNSATURATED FATTY ACIDS [Concomitant]
  8. ZOLOFT [Concomitant]

REACTIONS (2)
  - HYPOXIC-ISCHAEMIC ENCEPHALOPATHY [None]
  - PARTIAL SEIZURES WITH SECONDARY GENERALISATION [None]
